FAERS Safety Report 7554770-4 (Version None)
Quarter: 2011Q2

REPORT INFORMATION
  Report Type: 
  Country: None (occurrence: None)
  Receive Date: 20110615
  Receipt Date: 20110615
  Transmission Date: 20111010
  Serious: Yes (Hospitalization)
  Sender: FDA-Public Use
  Company Number: None

PATIENT
  Sex: Female
  Weight: 75.98 kg

DRUGS (2)
  1. CARBOPLATIN [Suspect]
     Dosage: 374 MG
     Dates: end: 20110408
  2. TAXOL [Suspect]
     Dosage: 319 MG
     Dates: end: 20110408

REACTIONS (8)
  - HYPOGLYCAEMIA [None]
  - FATIGUE [None]
  - CONFUSIONAL STATE [None]
  - DECREASED APPETITE [None]
  - CONSTIPATION [None]
  - ASTHENIA [None]
  - DIZZINESS [None]
  - VOMITING [None]
